FAERS Safety Report 8027589-8 (Version None)
Quarter: 2012Q1

REPORT INFORMATION
  Report Type: 
  Country: None (occurrence: None)
  Receive Date: 20120105
  Receipt Date: 20120105
  Transmission Date: 20120608
  Serious: Yes (Hospitalization)
  Sender: FDA-Public Use
  Company Number: None

PATIENT
  Age: 71 Year
  Sex: Male
  Weight: 146.3 kg

DRUGS (1)
  1. IBUPROFEN [Suspect]
     Dates: start: 20111202

REACTIONS (1)
  - GASTRIC HAEMORRHAGE [None]
